FAERS Safety Report 16153942 (Version 13)
Quarter: 2022Q4

REPORT INFORMATION
  Report Type: Spontaneous
  Country: US (occurrence: US)
  Receive Date: 20190403
  Receipt Date: 20221221
  Transmission Date: 20230112
  Serious: No
  Sender: FDA-Public Use
  Company Number: US-PFIZER INC-2019141368

PATIENT
  Age: 67 Year
  Sex: Female

DRUGS (3)
  1. EUCRISA [Suspect]
     Active Substance: CRISABOROLE
     Indication: Dermatitis atopic
     Dosage: UNK, 2X/DAY (APPLY TWICE A DAY WITH VASELINE TO AFFECTED AREAS AND GROIN AREA)
  2. EUCRISA [Suspect]
     Active Substance: CRISABOROLE
     Dosage: UNK (USE IT MORE THAN TWICE A DAY)
  3. PARAFFIN [Suspect]
     Active Substance: PARAFFIN
     Dosage: UNK

REACTIONS (3)
  - Off label use [Unknown]
  - Application site pain [Recovering/Resolving]
  - Gastrooesophageal reflux disease [Unknown]
